FAERS Safety Report 10029326 (Version 1)
Quarter: 2014Q1

REPORT INFORMATION
  Report Type: Spontaneous
  Country: US (occurrence: US)
  Receive Date: 20140321
  Receipt Date: 20140321
  Transmission Date: 20141002
  Serious: Yes (Other)
  Sender: FDA-Public Use
  Company Number: PHHY2014US032257

PATIENT
  Sex: 0

DRUGS (8)
  1. ETOPOSIDE [Suspect]
     Indication: EXTRAOCULAR RETINOBLASTOMA
  2. TOPOTECAN [Suspect]
     Indication: EXTRAOCULAR RETINOBLASTOMA
  3. CISPLATIN [Suspect]
     Indication: EXTRAOCULAR RETINOBLASTOMA
  4. VINORELBINE [Suspect]
     Indication: EXTRAOCULAR RETINOBLASTOMA
  5. GEMCITABINE [Suspect]
     Indication: EXTRAOCULAR RETINOBLASTOMA
  6. THIOTEPA [Suspect]
     Indication: EXTRAOCULAR RETINOBLASTOMA
  7. CYCLOPHOSPHAMIDE [Suspect]
     Indication: EXTRAOCULAR RETINOBLASTOMA
  8. DOXORUBICIN [Suspect]
     Indication: EXTRAOCULAR RETINOBLASTOMA
     Dosage: 220 MG/M2, UNK

REACTIONS (1)
  - Visual impairment [Unknown]
